FAERS Safety Report 24157591 (Version 1)
Quarter: 2024Q3

REPORT INFORMATION
  Report Type: Spontaneous
  Country: KR (occurrence: KR)
  Receive Date: 20240731
  Receipt Date: 20240731
  Transmission Date: 20241016
  Serious: Yes (Other)
  Sender: MEITHEAL PHARMACEUTICALS
  Company Number: KR-MEITHEAL-2024MPLIT00226

PATIENT
  Age: 79 Year
  Sex: Male

DRUGS (3)
  1. CARBOPLATIN [Suspect]
     Active Substance: CARBOPLATIN
     Indication: Small cell lung cancer metastatic
     Dosage: OVER A 10-WEEK PERIOD
     Route: 042
  2. ETOPOSIDE [Suspect]
     Active Substance: ETOPOSIDE
     Indication: Small cell lung cancer
     Dosage: OVER A 10-WEEK PERIOD
     Route: 042
  3. ATEZOLIZUMAB [Suspect]
     Active Substance: ATEZOLIZUMAB
     Indication: Small cell lung cancer
     Dosage: OVER A 10-WEEK PERIOD
     Route: 042

REACTIONS (1)
  - Optic ischaemic neuropathy [Not Recovered/Not Resolved]
